FAERS Safety Report 4922864-5 (Version None)
Quarter: 2006Q1

REPORT INFORMATION
  Report Type: 
  Country: None (occurrence: None)
  Receive Date: 20060224
  Receipt Date: 20051018
  Transmission Date: 20060701
  Serious: Yes (Other)
  Sender: FDA-Public Use
  Company Number: US-MERCK-0510USA07744

PATIENT
  Age: 44 Year
  Sex: Female

DRUGS (7)
  1. VIOXX [Suspect]
     Route: 048
  2. PAXIL CR [Concomitant]
     Route: 065
  3. HYDROCHLOROTHIAZIDE [Concomitant]
     Route: 065
  4. DIOVAN [Concomitant]
     Route: 065
  5. PREVACID [Concomitant]
     Route: 065
  6. SYNTHROID [Concomitant]
     Route: 065
  7. DARVOCET-N 50 [Concomitant]
     Route: 065

REACTIONS (20)
  - AMNESIA [None]
  - BENIGN NEOPLASM OF THYROID GLAND [None]
  - CARDIOVASCULAR DISORDER [None]
  - CHEST PAIN [None]
  - DEPRESSION [None]
  - EAR INFECTION [None]
  - EXOSTOSIS [None]
  - FIBROCYSTIC BREAST DISEASE [None]
  - HAEMATOCHEZIA [None]
  - HYPERTENSION [None]
  - HYPOAESTHESIA [None]
  - HYPOTHYROIDISM [None]
  - MYOCARDIAL INFARCTION [None]
  - OVARIAN CYST [None]
  - PEPTIC ULCER [None]
  - PHARYNGOLARYNGEAL PAIN [None]
  - PLANTAR FASCIITIS [None]
  - POSTNASAL DRIP [None]
  - RECTAL HAEMORRHAGE [None]
  - UPPER RESPIRATORY TRACT INFECTION [None]
